FAERS Safety Report 9072408 (Version 1)
Quarter: 2013Q1

REPORT INFORMATION
  Report Type: Report from Study
  Country: US (occurrence: US)
  Receive Date: 20130129
  Receipt Date: 20130129
  Transmission Date: 20140127
  Serious: No
  Sender: FDA-Public Use
  Company Number: US-ABBOTT-12P-163-0940694-00

PATIENT
  Sex: Female

DRUGS (10)
  1. HUMIRA 40 MG/0.8 ML PEN [Suspect]
     Indication: RHEUMATOID ARTHRITIS
     Dates: start: 2009
  2. PLAQUENIL [Concomitant]
     Indication: RHEUMATOID ARTHRITIS
  3. ALDACTONE [Concomitant]
     Indication: HYPERTENSION
  4. CITRICAL D [Concomitant]
     Indication: MINERAL SUPPLEMENTATION
  5. CELEBREX [Concomitant]
     Indication: RHEUMATOID ARTHRITIS
  6. PROPRANOLOL [Concomitant]
     Indication: HYPERTENSION
  7. LEVOXYL [Concomitant]
     Indication: THYROID DISORDER
  8. DIBENZYLINE [Concomitant]
     Indication: HYPERTENSION
  9. RANITIDINE [Concomitant]
     Indication: GASTROOESOPHAGEAL REFLUX DISEASE
  10. VITAMIN D [Concomitant]
     Indication: VITAMIN SUPPLEMENTATION

REACTIONS (2)
  - Injection site pruritus [Not Recovered/Not Resolved]
  - Injection site erythema [Not Recovered/Not Resolved]
